FAERS Safety Report 4350078-9 (Version None)
Quarter: 2004Q2

REPORT INFORMATION
  Report Type: 
  Country: None (occurrence: None)
  Receive Date: 20040429
  Receipt Date: 20040421
  Transmission Date: 20050107
  Serious: Yes (Death)
  Sender: FDA-Public Use
  Company Number: CO-MERCK-0404COL00003

PATIENT
  Age: 47 Year
  Sex: Male
  Weight: 53 kg

DRUGS (3)
  1. CANCIDAS [Suspect]
     Indication: CANDIDIASIS
     Route: 042
     Dates: start: 20040305, end: 20040309
  2. CANCIDAS [Suspect]
     Route: 042
  3. FLUCONAZOLE [Concomitant]
     Indication: CANDIDIASIS
     Route: 065
     Dates: start: 20040101

REACTIONS (1)
  - MULTI-ORGAN FAILURE [None]
